FAERS Safety Report 5820020-X (Version None)
Quarter: 2008Q3

REPORT INFORMATION
  Report Type: 
  Country: None (occurrence: None)
  Receive Date: 20080718
  Receipt Date: 20080718
  Transmission Date: 20090109
  Serious: Yes (Disabling, Other)
  Sender: FDA-Public Use
  Company Number: None

PATIENT
  Age: 67 Year
  Sex: Female
  Weight: 104.3273 kg

DRUGS (2)
  1. FELBAMATE 400MG WALLACE [Suspect]
     Indication: EPILEPSY
     Dosage: 400MG TID PO
     Route: 048
     Dates: start: 20070315, end: 20070418
  2. FELBAMATE 600MG WALLACE [Suspect]
     Indication: EPILEPSY
     Dosage: 1200MG TID PO
     Route: 048
     Dates: start: 20070425, end: 20080715

REACTIONS (4)
  - HAEMATOCRIT DECREASED [None]
  - HAEMOGLOBIN DECREASED [None]
  - PLATELET COUNT DECREASED [None]
  - RED BLOOD CELL COUNT DECREASED [None]
